FAERS Safety Report 10033878 (Version 1)
Quarter: 2014Q1

REPORT INFORMATION
  Report Type: Spontaneous
  Country: GB (occurrence: GB)
  Receive Date: 20140325
  Receipt Date: 20140325
  Transmission Date: 20141002
  Serious: Yes (Hospitalization, Other)
  Sender: FDA-Public Use
  Company Number: GB-DRREDDYS-GER/UKI/14/0039147

PATIENT
  Age: 51 Year
  Sex: Female

DRUGS (11)
  1. OMEPRAZOLE [Suspect]
     Indication: DYSPEPSIA
     Route: 048
  2. OMEPRAZOLE [Suspect]
     Route: 048
     Dates: start: 20130307, end: 20130307
  3. HUMAN ANTIHUMAN IL-17 MONOCLONAL ANTIBODY 1-215 LIGHT CHAIN 1-457 HEAV [Suspect]
     Indication: PSORIASIS
     Route: 058
     Dates: start: 20121214, end: 20130205
  4. AMOXICILLIN [Suspect]
     Indication: PRODUCT USED FOR UNKNOWN INDICATION
     Dates: start: 20130307, end: 20130307
  5. CITALOPRAM [Suspect]
     Indication: DEPRESSION
     Route: 048
     Dates: start: 20130307, end: 20130307
  6. CITALOPRAM [Suspect]
     Route: 048
  7. LEVOTHYROXINE [Suspect]
     Indication: HYPOTHYROIDISM
     Route: 048
     Dates: start: 20130307, end: 20130307
  8. LEVOTHYROXINE [Suspect]
     Route: 048
  9. NAPROXEN [Suspect]
     Indication: PAIN
     Route: 048
     Dates: end: 20130307
  10. PARACETAMOL [Suspect]
     Indication: PAIN
     Route: 048
     Dates: start: 20130307, end: 20130307
  11. PARACETAMOL [Suspect]
     Route: 048

REACTIONS (2)
  - Intentional overdose [Recovering/Resolving]
  - Suicide attempt [Recovering/Resolving]
